FAERS Safety Report 5673106-7 (Version None)
Quarter: 2008Q1

REPORT INFORMATION
  Report Type: 
  Country: None (occurrence: None)
  Receive Date: 20080319
  Receipt Date: 20080317
  Transmission Date: 20080703
  Serious: Yes (Hospitalization)
  Sender: FDA-Public Use
  Company Number: GB-ASTRAZENECA-2008GB00525

PATIENT
  Age: 81 Year
  Sex: Female

DRUGS (6)
  1. OMEPRAZOLE [Suspect]
     Indication: GASTRITIS
     Route: 048
     Dates: start: 20010101, end: 20080110
  2. ESOMEPRAZOLE MAGNESIUM [Suspect]
     Indication: GASTRITIS
     Route: 048
  3. ATENOLOL [Concomitant]
     Indication: HYPERTENSION
     Route: 048
  4. CALCICHEW D3 [Concomitant]
     Indication: SPINAL COMPRESSION FRACTURE
     Route: 048
  5. RISEDRONATE SODIUM [Concomitant]
     Indication: SPINAL COMPRESSION FRACTURE
     Route: 048
  6. TOLTERODINE TARTRATE [Concomitant]
     Indication: URINARY INCONTINENCE
     Route: 048

REACTIONS (3)
  - COLITIS [None]
  - DIARRHOEA [None]
  - NAUSEA [None]
